FAERS Safety Report 7560412-4 (Version None)
Quarter: 2011Q2

REPORT INFORMATION
  Report Type: 
  Country: None (occurrence: None)
  Receive Date: 20110621
  Receipt Date: 20110613
  Transmission Date: 20111010
  Serious: Yes (Other)
  Sender: FDA-Public Use
  Company Number: US-JNJFOC-20101002914

PATIENT
  Sex: Male
  Weight: 106.6 kg

DRUGS (6)
  1. RISPERDAL CONSTA [Suspect]
     Dosage: NDC 050468-306
     Route: 030
  2. RISPERDAL CONSTA [Suspect]
     Route: 030
     Dates: start: 20100501, end: 20101001
  3. ZYPREXA [Suspect]
     Indication: SCHIZOPHRENIA
     Route: 065
  4. RISPERDAL CONSTA [Suspect]
     Indication: SCHIZOPHRENIA, PARANOID TYPE
     Route: 030
     Dates: start: 20100401, end: 20100801
  5. RISPERDAL CONSTA [Suspect]
     Route: 030
     Dates: start: 20090101
  6. INVEGA [Suspect]
     Indication: SCHIZOPHRENIA, PARANOID TYPE
     Route: 048
     Dates: start: 20080501, end: 20091101

REACTIONS (16)
  - ABNORMAL BEHAVIOUR [None]
  - MUSCLE TIGHTNESS [None]
  - MUSCLE SPASMS [None]
  - GRIMACING [None]
  - DISSOCIATION [None]
  - TARDIVE DYSKINESIA [None]
  - MUSCULOSKELETAL DISORDER [None]
  - DYSPHAGIA [None]
  - MUSCLE TWITCHING [None]
  - NECK PAIN [None]
  - TORTICOLLIS [None]
  - HYPERTENSION [None]
  - DEPRESSION [None]
  - WEIGHT DECREASED [None]
  - MOVEMENT DISORDER [None]
  - DYSTONIA [None]
